FAERS Safety Report 8850455 (Version 1)
Quarter: 2012Q4

REPORT INFORMATION
  Report Type: 
  Country: NL (occurrence: NL)
  Receive Date: 20121019
  Receipt Date: 20121019
  Transmission Date: 20130627
  Serious: Yes (Hospitalization)
  Sender: FDA-Public Use
  Company Number: NL-VERTEX PHARMACEUTICAL INC.-2012-023246

PATIENT
  Sex: Male

DRUGS (3)
  1. TELAPREVIR [Suspect]
     Indication: HEPATITIS C
     Dosage: 375 mg, tid
     Route: 048
  2. PEGASYS [Suspect]
     Indication: HEPATITIS C
     Dosage: UNK UNK, qw
     Route: 065
  3. COPEGUS [Suspect]
     Indication: HEPATITIS C
     Dosage: UNK, bid
     Route: 051

REACTIONS (3)
  - Blood glucose increased [Unknown]
  - Oral mucosal blistering [Not Recovered/Not Resolved]
  - Viral infection [Unknown]
